FAERS Safety Report 4606505-2 (Version None)
Quarter: 2005Q2

REPORT INFORMATION
  Report Type: 
  Country: None (occurrence: None)
  Receive Date: 20050223
  Receipt Date: 20040517
  Transmission Date: 20051028
  Serious: Yes (Other)
  Sender: FDA-Public Use
  Company Number: WAES   0309USA00966

PATIENT
  Age: 80 Year
  Sex: Female
  Weight: 64.8644 kg

DRUGS (5)
  1. ZOCOR [Suspect]
     Indication: HYPERCHOLESTEROLAEMIA
     Dosage: 10 MG/HS/PO
     Route: 048
     Dates: start: 20020115, end: 20030908
  2. CALTRATE [Concomitant]
  3. FOSAMAX [Concomitant]
  4. TENORMIN [Concomitant]
  5. ASPIRIN [Concomitant]

REACTIONS (5)
  - ASPARTATE AMINOTRANSFERASE INCREASED [None]
  - CARDIOMEGALY [None]
  - CHRONIC OBSTRUCTIVE PULMONARY DISEASE [None]
  - HEPATOCELLULAR DAMAGE [None]
  - LIMB INJURY [None]
